FAERS Safety Report 23641535 (Version 1)
Quarter: 2024Q1

REPORT INFORMATION
  Report Type: Spontaneous
  Country: CN (occurrence: CN)
  Receive Date: 20240318
  Receipt Date: 20240318
  Transmission Date: 20240409
  Serious: Yes (Other)
  Sender: FDA-Public Use
  Company Number: None

PATIENT
  Age: 3 Year
  Sex: Male

DRUGS (2)
  1. CYCLOPHOSPHAMIDE [Suspect]
     Active Substance: CYCLOPHOSPHAMIDE
     Indication: Acute lymphocytic leukaemia
     Dosage: 0.4 G, ONE TIME IN ONE DAY, DILUTED WITH 500 ML OF 0.9% NS
     Route: 041
     Dates: start: 20240219, end: 20240219
  2. SODIUM CHLORIDE [Suspect]
     Active Substance: SODIUM CHLORIDE
     Indication: Medication dilution
     Dosage: 0.9% 500 ML, ONE TIME IN ONE DAY, USED TO DILUTE 0.4 G OF CYCLOPHOSPHAMIDE
     Route: 041
     Dates: start: 20240219, end: 20240219

REACTIONS (2)
  - Drug-induced liver injury [Unknown]
  - Alanine aminotransferase increased [Recovered/Resolved]

NARRATIVE: CASE EVENT DATE: 20240222
